FAERS Safety Report 4569315-0 (Version None)
Quarter: 2005Q1

REPORT INFORMATION
  Report Type: 
  Country: None (occurrence: None)
  Receive Date: 20050201
  Receipt Date: 20050120
  Transmission Date: 20050727
  Serious: Yes (Life-Threatening, Hospitalization)
  Sender: FDA-Public Use
  Company Number: 211868

PATIENT
  Age: 56 Year
  Sex: Female
  Weight: 75.7 kg

DRUGS (10)
  1. AVASTIN [Suspect]
     Indication: COLON CANCER
     Dosage: 386 MG, INTRAVENOUS
     Route: 042
     Dates: start: 20040908
  2. ERLOTINIB (ERLOTINIB)TABLET, 100MG [Suspect]
     Indication: COLON CANCER
     Dosage: 100 MG, ORAL
     Route: 048
     Dates: start: 20040908
  3. OXALIPLATIN (OXALIPLATIN) [Suspect]
     Indication: COLON CANCER
     Dosage: 122 MG, INTRAVENOUS
     Route: 042
     Dates: start: 20041208
  4. FLUOROURACIL [Suspect]
     Indication: COLON CANCER
     Dosage: SEE IMAGE
     Route: 042
     Dates: start: 20040908
  5. FLUOROURACIL [Suspect]
     Indication: COLON CANCER
     Dosage: SEE IMAGE
     Route: 042
     Dates: start: 20040908
  6. LEUCOVORIN CALCIUM [Suspect]
     Indication: COLON CANCER
     Dosage: 376 MG, INTRAVENOUS
     Route: 042
     Dates: start: 20040908
  7. PEPCID [Concomitant]
  8. PREMARIN [Concomitant]
  9. LOMOTIL [Concomitant]
  10. COUMADIN [Concomitant]

REACTIONS (2)
  - BACK PAIN [None]
  - BACTERIAL SEPSIS [None]
